FAERS Safety Report 6129991-8 (Version None)
Quarter: 2009Q1

REPORT INFORMATION
  Report Type: 
  Country: None (occurrence: None)
  Receive Date: 20090323
  Receipt Date: 20090323
  Transmission Date: 20090719
  Serious: Yes (Other)
  Sender: FDA-Public Use
  Company Number: None

PATIENT
  Age: 55 Year
  Sex: Male
  Weight: 116.1208 kg

DRUGS (2)
  1. SIMVASTATIN [Suspect]
     Indication: BLOOD CHOLESTEROL INCREASED
     Dosage: 20 MG 1 PER DAY PO
     Route: 048
     Dates: start: 20090227, end: 20090314
  2. SIMVASTATIN [Suspect]
     Indication: LOW DENSITY LIPOPROTEIN INCREASED
     Dosage: 20 MG 1 PER DAY PO
     Route: 048
     Dates: start: 20090227, end: 20090314

REACTIONS (6)
  - ANORGASMIA [None]
  - ERECTILE DYSFUNCTION [None]
  - MOOD ALTERED [None]
  - MYALGIA [None]
  - SENSORY LOSS [None]
  - SEXUAL DYSFUNCTION [None]
